FAERS Safety Report 5385865-1 (Version None)
Quarter: 2007Q3

REPORT INFORMATION
  Report Type: 
  Country: None (occurrence: None)
  Receive Date: 20070712
  Receipt Date: 20070702
  Transmission Date: 20080115
  Serious: Yes (Other)
  Sender: FDA-Public Use
  Company Number: US-ELI_LILLY_AND_COMPANY-US200707000218

PATIENT
  Sex: Female

DRUGS (6)
  1. CYMBALTA [Suspect]
     Indication: DEPRESSION
     Dosage: 30 MG, UNK
     Dates: start: 20061201, end: 20070101
  2. CYMBALTA [Suspect]
     Dosage: 30 MG, UNK
     Dates: start: 20070101
  3. PROZAC [Suspect]
     Indication: DEPRESSION
     Dosage: 40 MG, UNK
     Dates: start: 19990101, end: 20061201
  4. ACIPHEX [Concomitant]
  5. TRAZODONE HCL [Concomitant]
     Dosage: 200 MG, EACH EVENING
  6. HORMONES AND RELATED AGENTS [Concomitant]
     Indication: MENOPAUSE

REACTIONS (7)
  - ABDOMINAL PAIN UPPER [None]
  - ANOREXIA [None]
  - DRUG INEFFECTIVE [None]
  - GALLBLADDER PERFORATION [None]
  - NAUSEA [None]
  - SUICIDAL IDEATION [None]
  - ULCER [None]
